FAERS Safety Report 7335595-1 (Version None)
Quarter: 2011Q1

REPORT INFORMATION
  Report Type: 
  Country: None (occurrence: None)
  Receive Date: 20110301
  Receipt Date: 20110301
  Transmission Date: 20110831
  Serious: Yes (Hospitalization)
  Sender: FDA-Public Use
  Company Number: None

PATIENT
  Age: 79 Year
  Sex: Male
  Weight: 89.4 kg

DRUGS (1)
  1. TERAZOSIN HCL [Suspect]
     Indication: PRODUCT USED FOR UNKNOWN INDICATION
     Dosage: 2 MG DAILY PO
     Route: 048
     Dates: start: 20110119, end: 20110119

REACTIONS (2)
  - HYPOTENSION [None]
  - DIZZINESS [None]
